FAERS Safety Report 5700351-4 (Version None)
Quarter: 2008Q2

REPORT INFORMATION
  Report Type: 
  Country: None (occurrence: None)
  Receive Date: 20080410
  Receipt Date: 20080328
  Transmission Date: 20081010
  Serious: Yes (Other)
  Sender: FDA-Public Use
  Company Number: CA-PFIZER INC-2008018638

PATIENT
  Sex: Male
  Weight: 78 kg

DRUGS (1)
  1. CHAMPIX [Suspect]
     Indication: SMOKING CESSATION THERAPY
     Route: 048
     Dates: start: 20080124, end: 20080205

REACTIONS (3)
  - DERMATITIS ALLERGIC [None]
  - POST INFLAMMATORY PIGMENTATION CHANGE [None]
  - PRURITUS GENERALISED [None]
